FAERS Safety Report 7253265-5 (Version None)
Quarter: 2011Q1

REPORT INFORMATION
  Report Type: 
  Country: None (occurrence: None)
  Receive Date: 20110129
  Receipt Date: 20100217
  Transmission Date: 20110831
  Serious: No
  Sender: FDA-Public Use
  Company Number: US-ABBOTT-10P-163-0627840-00

PATIENT
  Sex: Male
  Weight: 65.83 kg

DRUGS (9)
  1. HUMIRA [Suspect]
     Dates: end: 20100101
  2. PROCHLORPER [Concomitant]
     Indication: NAUSEA
  3. HYDROCO AP [Concomitant]
     Indication: PAIN
  4. MULTI-VITAMIN [Concomitant]
     Indication: PRODUCT USED FOR UNKNOWN INDICATION
  5. IRON [Concomitant]
     Indication: PRODUCT USED FOR UNKNOWN INDICATION
     Dosage: PILL
  6. HUMIRA [Suspect]
     Indication: COLITIS ULCERATIVE
     Dosage: ONCE
     Dates: start: 20091201, end: 20091201
  7. HUMIRA [Suspect]
     Dosage: HUMIRA PRE-FILLED SYRINGE
     Dates: start: 20100101
  8. ATRIPLA [Concomitant]
     Indication: HIV INFECTION
  9. FLUOXETINE [Concomitant]
     Indication: DEPRESSION

REACTIONS (1)
  - ARTHRALGIA [None]
